FAERS Safety Report 17418553 (Version 3)
Quarter: 2020Q1

REPORT INFORMATION
  Report Type: Spontaneous
  Country: JP (occurrence: JP)
  Receive Date: 20200214
  Receipt Date: 20200306
  Transmission Date: 20200409
  Serious: Yes (Other)
  Sender: FDA-Public Use
  Company Number: JP-BAUSCH-BL-2020-004824

PATIENT
  Age: 54 Year
  Sex: Male

DRUGS (1)
  1. MOVIPREP [Suspect]
     Active Substance: ASCORBIC ACID\POLYETHYLENE GLYCOL 3350\POTASSIUM CHLORIDE\SODIUM ASCORBATE\SODIUM CHLORIDE\SODIUM SULFATE
     Indication: BOWEL PREPARATION
     Dosage: 28/JAN/2020 06:30:00 TO 28/JAN/2020 09:00:00, DURATION: 2 HRS 30 MINS
     Route: 048
     Dates: start: 20200128, end: 20200128

REACTIONS (4)
  - Medication error [Unknown]
  - Haematemesis [Recovered/Resolved]
  - Colitis ischaemic [Recovered/Resolved]
  - Vomiting [Recovered/Resolved]

NARRATIVE: CASE EVENT DATE: 20200128
